FAERS Safety Report 5136958-5 (Version None)
Quarter: 2006Q4

REPORT INFORMATION
  Report Type: 
  Country: None (occurrence: None)
  Receive Date: 20061024
  Receipt Date: 20061013
  Transmission Date: 20070319
  Serious: Yes (Other)
  Sender: FDA-Public Use
  Company Number: 2006126433

PATIENT
  Age: 79 Year
  Sex: Female
  Weight: 60.3284 kg

DRUGS (6)
  1. LIPITOR [Suspect]
     Indication: BLOOD CHOLESTEROL INCREASED
     Dosage: 40 MG (40 MG, 1 N D)
     Dates: start: 20050101, end: 20060703
  2. PREVACID [Concomitant]
  3. ATENOLOL [Concomitant]
  4. LOTENSIN HCT (BENAZEPRIL HYDROCHLORIDE, HYDROCHLOROTHIAZIDE) [Concomitant]
  5. ACTONEL [Concomitant]
  6. ALPHAGAN [Concomitant]

REACTIONS (7)
  - ARTHRALGIA [None]
  - BALANCE DISORDER [None]
  - BLOOD CHOLESTEROL INCREASED [None]
  - DYSSTASIA [None]
  - MUSCULAR WEAKNESS [None]
  - MYALGIA [None]
  - PAIN IN EXTREMITY [None]
